FAERS Safety Report 6447113-0 (Version None)
Quarter: 2009Q4

REPORT INFORMATION
  Report Type: 
  Country: None (occurrence: None)
  Receive Date: 20091119
  Receipt Date: 20090724
  Transmission Date: 20100525
  Serious: Yes (Life-Threatening)
  Sender: FDA-Public Use
  Company Number: JP-SANOFI-AVENTIS-200911955JP

PATIENT
  Age: 75 Year
  Sex: Female
  Weight: 60 kg

DRUGS (19)
  1. ENOXAPARIN SODIUM [Suspect]
     Indication: FEMORAL NECK FRACTURE
     Route: 058
     Dates: start: 20090619, end: 20090629
  2. ENOXAPARIN SODIUM [Suspect]
     Route: 058
     Dates: start: 20090619, end: 20090629
  3. FLOMOX [Concomitant]
     Indication: INFECTION PROPHYLAXIS
     Dosage: DOSE UNIT: 100 MG
     Route: 048
     Dates: start: 20090625, end: 20090625
  4. LASIX [Concomitant]
     Route: 048
  5. ALDACTONE [Concomitant]
     Route: 048
  6. CLARITH [Concomitant]
     Route: 048
  7. ASPIRIN [Concomitant]
     Route: 048
  8. HOKUNALIN [Concomitant]
  9. DAIKENTYUTO [Concomitant]
     Dosage: DOSE UNIT: 2.5 G
     Route: 048
  10. MUCODYNE [Concomitant]
     Dosage: DOSE UNIT: 250 MG
     Route: 048
  11. ALLOID G [Concomitant]
     Route: 048
  12. LENDORMIN [Concomitant]
     Route: 048
  13. EURODIN [Concomitant]
     Route: 048
  14. TAKEPRON [Concomitant]
     Route: 048
  15. THEODUR ^ELAN^ [Concomitant]
     Route: 048
  16. CRESTOR [Concomitant]
     Route: 048
  17. TERSIGAN [Concomitant]
     Dosage: DOSE UNIT: 100 UG
     Route: 055
  18. FLUTIDE NASAL [Concomitant]
     Route: 055
  19. MUCOSTA [Concomitant]
     Dosage: DOSE UNIT: 100 MG
     Route: 048

REACTIONS (3)
  - DECREASED APPETITE [None]
  - HEPATIC FUNCTION ABNORMAL [None]
  - MALAISE [None]
